FAERS Safety Report 4451680-6 (Version None)
Quarter: 2004Q3

REPORT INFORMATION
  Report Type: 
  Country: None (occurrence: None)
  Receive Date: 20040915
  Receipt Date: 20040906
  Transmission Date: 20050211
  Serious: Yes (Hospitalization)
  Sender: FDA-Public Use
  Company Number: 2004231950FR

PATIENT
  Age: 85 Year
  Sex: Female

DRUGS (14)
  1. PANTOPRAZOLE SODIUM [Suspect]
     Dosage: 20 MG QD ORAL
     Route: 048
     Dates: start: 20040731, end: 20040802
  2. MEDIATENSYL (URAPIDIL) [Suspect]
     Dosage: 20 MG BID ORAL
     Route: 048
     Dates: start: 20040729, end: 20040802
  3. LOMOTIL [Suspect]
     Dosage: PRN ORAL
     Route: 048
     Dates: start: 20040729, end: 20040802
  4. MYOLASTAN (TETRAZEPAM) [Concomitant]
     Dosage: 50 MG QD ORAL
     Route: 048
     Dates: start: 20040731, end: 20040802
  5. COKENZEN (CANDESARTAN CILETEXIL-HYDROCHLOROTHIAZIDE) [Suspect]
     Indication: ESSENTIAL HYPERTENSION
     Dosage: 8 MG QD ORAL
     Route: 048
     Dates: start: 20040729, end: 20040802
  6. CANDESARTAN CILEXETIL (CANDESARTAN CILEXETIL) [Suspect]
     Indication: ESSENTIAL HYPERTENSION
     Dosage: DF PRN ORAL
     Route: 048
     Dates: end: 20040729
  7. DELTA-CORTEF [Suspect]
     Dosage: 20 MG BID ORAL
     Route: 048
     Dates: start: 20040731, end: 20040806
  8. AMLODIPINE BESYLATE [Suspect]
     Indication: ESSENTIAL HYPERTENSION
     Dosage: 5 MG QD ORAL
     Route: 048
     Dates: start: 20040731, end: 20040802
  9. CLARITHROMYCIN [Suspect]
     Dosage: 1 DF BID ORAL
     Route: 048
     Dates: start: 20040731, end: 20040802
  10. ACETAMINOPHEN [Suspect]
     Dates: start: 20040731, end: 20040802
  11. FLECAINIDE ACETATE [Suspect]
     Indication: ARRHYTHMIA
     Dosage: 50 MG BID ORAL
     Route: 048
     Dates: start: 20040709
  12. SOTALOL HCL [Suspect]
     Dosage: 0.5 DF ORAL
     Route: 048
     Dates: start: 20040709
  13. LEVOTHYROXINE SODIUM [Suspect]
     Indication: HYPERTHYROIDISM
     Dosage: .75 UG  QID,ORAL
     Route: 048
  14. CALCITONIN SALMON [Suspect]
     Dosage: 0.5 MG QD
     Dates: start: 20040727, end: 20040802

REACTIONS (2)
  - DEPRESSED LEVEL OF CONSCIOUSNESS [None]
  - HYPONATRAEMIA [None]
